FAERS Safety Report 23824681 (Version 1)
Quarter: 2024Q2

REPORT INFORMATION
  Report Type: Spontaneous
  Country: MX (occurrence: None)
  Receive Date: 20240507
  Receipt Date: 20240507
  Transmission Date: 20240715
  Serious: Yes (Disabling)
  Sender: FDA-Public Use
  Company Number: MX-ROCHE-3558192

PATIENT
  Sex: Female
  Weight: 59 kg

DRUGS (7)
  1. OCREVUS [Suspect]
     Active Substance: OCRELIZUMAB
     Indication: Multiple sclerosis
     Route: 042
     Dates: start: 202304
  2. TERIPARATIDE [Concomitant]
     Active Substance: TERIPARATIDE
  3. BACLOFEN [Concomitant]
     Active Substance: BACLOFEN
  4. TIZANIDINE [Concomitant]
     Active Substance: TIZANIDINE
  5. PREGABALIN [Concomitant]
     Active Substance: PREGABALIN
  6. VITAMIN D [Concomitant]
     Active Substance: VITAMIN D NOS
  7. FOLIC ACID [Concomitant]
     Active Substance: FOLIC ACID

REACTIONS (1)
  - Disease progression [Not Recovered/Not Resolved]
